FAERS Safety Report 18580743 (Version 1)
Quarter: 2020Q4

REPORT INFORMATION
  Report Type: Other
  Country: US (occurrence: US)
  Receive Date: 20201204
  Receipt Date: 20201204
  Transmission Date: 20210114
  Serious: Yes (Hospitalization, Other)
  Sender: FDA-Public Use
  Company Number: US-P+L DEVELOPMENTS OF NEWYORK CORPORATION-2096705

PATIENT
  Age: 8 Decade
  Sex: Male

DRUGS (2)
  1. NIVOLUMAB [Suspect]
     Active Substance: NIVOLUMAB
     Route: 042
  2. OMEPRAZOLE. [Suspect]
     Active Substance: OMEPRAZOLE
     Indication: PRODUCT USED FOR UNKNOWN INDICATION
     Route: 065

REACTIONS (3)
  - Renal tubular acidosis [Unknown]
  - Tubulointerstitial nephritis [Unknown]
  - Arteriosclerosis [Unknown]
